FAERS Safety Report 19273689 (Version 1)
Quarter: 2021Q2

REPORT INFORMATION
  Report Type: Spontaneous
  Country: ES (occurrence: ES)
  Receive Date: 20210519
  Receipt Date: 20210519
  Transmission Date: 20210717
  Serious: Yes (Death, Hospitalization, Other)
  Sender: FDA-Public Use
  Company Number: ES-AUROBINDO-AUR-APL-2020-056683

PATIENT
  Age: 11 Year
  Sex: Female

DRUGS (16)
  1. TOFACITINIB [Suspect]
     Active Substance: TOFACITINIB
     Indication: INTERSTITIAL LUNG DISEASE
     Dosage: 10 MILLIGRAM, ONCE A DAY
     Route: 065
  2. AZITHROMYCIN ANHYDROUS. [Suspect]
     Active Substance: AZITHROMYCIN ANHYDROUS
     Indication: PNEUMOCYSTIS JIROVECII INFECTION
     Dosage: UNK
     Route: 065
  3. PREDNISONE. [Suspect]
     Active Substance: PREDNISONE
     Indication: IMMUNOSUPPRESSANT DRUG THERAPY
  4. TACROLIMUS. [Suspect]
     Active Substance: TACROLIMUS
     Indication: INTERSTITIAL LUNG DISEASE
  5. REMDESIVIR. [Suspect]
     Active Substance: REMDESIVIR
     Indication: COVID-19
     Dosage: 200 MILLIGRAM, ONCE A DAY
     Route: 065
  6. HYDROXYCHLOROQUINE [Suspect]
     Active Substance: HYDROXYCHLOROQUINE
     Indication: COVID-19
     Dosage: 400 MILLIGRAM, ONCE A DAY
     Route: 065
  7. TOCILIZUMAB. [Suspect]
     Active Substance: TOCILIZUMAB
     Indication: COVID-19
     Dosage: 8 MILLIGRAM/KILOGRAM (SINGLE DOSE)
     Route: 065
  8. METHYLPREDNISOLONE. [Suspect]
     Active Substance: METHYLPREDNISOLONE
     Indication: IMMUNOSUPPRESSANT DRUG THERAPY
     Dosage: 2 MILLIGRAM/KILOGRAM, ONCE A DAY
     Route: 065
  9. PREDNISONE. [Suspect]
     Active Substance: PREDNISONE
     Indication: INTERSTITIAL LUNG DISEASE
     Dosage: 1 MILLIGRAM/KILOGRAM, ONCE A DAY
     Route: 048
  10. TACROLIMUS. [Suspect]
     Active Substance: TACROLIMUS
     Indication: IMMUNOSUPPRESSANT DRUG THERAPY
     Dosage: 0.2 MILLIGRAM/KILOGRAM, DAILY
     Route: 065
  11. CYCLOPHOSPHAMIDE. [Suspect]
     Active Substance: CYCLOPHOSPHAMIDE
     Indication: IMMUNOSUPPRESSANT DRUG THERAPY
     Dosage: 500 MILLIGRAM/SQ. METER
     Route: 042
  12. METHYLPREDNISOLONE. [Suspect]
     Active Substance: METHYLPREDNISOLONE
     Indication: INTERSTITIAL LUNG DISEASE
     Dosage: 30 MILLIGRAM/KILOGRAM, ONCE A DAY
     Route: 065
  13. TACROLIMUS. [Suspect]
     Active Substance: TACROLIMUS
     Indication: INTERSTITIAL LUNG DISEASE
  14. METHYLPREDNISOLONE. [Suspect]
     Active Substance: METHYLPREDNISOLONE
     Dosage: UNK
     Route: 065
  15. HUMAN NORMAL IMMUNOGLOBULIN [Suspect]
     Active Substance: HUMAN IMMUNOGLOBULIN G
     Indication: IMMUNOSUPPRESSANT DRUG THERAPY
     Dosage: 2 GRAM PER KILOGRAM
     Route: 065
  16. CYCLOPHOSPHAMIDE. [Suspect]
     Active Substance: CYCLOPHOSPHAMIDE
     Indication: PNEUMOCYSTIS JIROVECII INFECTION

REACTIONS (12)
  - Septic shock [Unknown]
  - Pneumomediastinum [Unknown]
  - COVID-19 [Unknown]
  - Intentional product use issue [Unknown]
  - Bacterial sepsis [Unknown]
  - Pneumocystis jirovecii pneumonia [Recovered/Resolved]
  - Enterococcal infection [Unknown]
  - Interstitial lung disease [Fatal]
  - Dermatomyositis [Fatal]
  - Pneumothorax [Unknown]
  - Acute kidney injury [Unknown]
  - Off label use [Unknown]
